FAERS Safety Report 17968149 (Version 2)
Quarter: 2021Q2

REPORT INFORMATION
  Report Type: Spontaneous
  Country: US (occurrence: US)
  Receive Date: 20200701
  Receipt Date: 20210629
  Transmission Date: 20210717
  Serious: Yes (Disabling)
  Sender: FDA-Public Use
  Company Number: US-TEVA-2020-US-1794057

PATIENT
  Sex: Female

DRUGS (3)
  1. DOCETAXEL. [Suspect]
     Active Substance: DOCETAXEL
     Route: 065
     Dates: start: 20170310, end: 20170512
  2. TAXOTERE [Suspect]
     Active Substance: DOCETAXEL
     Route: 065
     Dates: start: 20170310, end: 20170512
  3. DOCETAXEL. [Suspect]
     Active Substance: DOCETAXEL
     Dosage: FORM OF ADMIN: INJECTION CONCENTRATE
     Route: 065
     Dates: start: 20170310, end: 20170512

REACTIONS (1)
  - Alopecia [Unknown]
